FAERS Safety Report 4961117-6 (Version None)
Quarter: 2006Q1

REPORT INFORMATION
  Report Type: 
  Country: None (occurrence: None)
  Receive Date: 20060328
  Receipt Date: 20060315
  Transmission Date: 20060701
  Serious: Yes (Hospitalization, Other)
  Sender: FDA-Public Use
  Company Number: 2005027563

PATIENT
  Age: 60 Year
  Sex: Male
  Weight: 68 kg

DRUGS (6)
  1. CELEBREX [Suspect]
     Indication: UROGENITAL DISORDER
     Dosage: 200 MG (200 MG, 1 IN 1 D), ORAL
     Route: 048
     Dates: start: 20050126, end: 20050127
  2. ANTISEPTICS (ANTISEPTICS) [Suspect]
     Indication: UROGENITAL DISORDER
     Dosage: (DAILY),
     Dates: start: 20050126, end: 20050127
  3. BETA BLOCKING AGENTS (BETA BLOCKING AGENTS) [Concomitant]
  4. ASPEGIC 1000 [Concomitant]
  5. ALL OTHER THERAPEUTIC PRODUCTS (ALL OTHER THERAPEUTIC PRODUCTS) [Concomitant]
  6. ALL OTHER THERAPEUTIC PRODUCTS (ALL OTHER THERAPEUTIC PRODUCTS) [Concomitant]

REACTIONS (1)
  - ACUTE CORONARY SYNDROME [None]
